FAERS Safety Report 9309096 (Version 1)
Quarter: 2013Q2

REPORT INFORMATION
  Report Type: Spontaneous
  Country: US (occurrence: US)
  Receive Date: 20130525
  Receipt Date: 20130525
  Transmission Date: 20140414
  Serious: No
  Sender: FDA-Public Use
  Company Number: US-BRISTOL-MYERS SQUIBB COMPANY-18722413

PATIENT
  Age: 58 Year
  Sex: Female

DRUGS (4)
  1. BYETTA [Suspect]
     Indication: TYPE 1 DIABETES MELLITUS
     Route: 058
     Dates: start: 20130314, end: 20130318
  2. NOVOLOG [Concomitant]
     Indication: TYPE 1 DIABETES MELLITUS
     Route: 058
  3. LANTUS [Concomitant]
     Indication: TYPE 1 DIABETES MELLITUS
     Dosage: 1DF: 36U:EACH MRNG, 30U:EACH EVE.
     Route: 058
  4. EXENATIDE 5MCG PEN, DISPOSABLE DEVICE [Concomitant]

REACTIONS (8)
  - Blood glucose increased [Unknown]
  - Back pain [Recovering/Resolving]
  - Malaise [Recovering/Resolving]
  - Headache [Recovering/Resolving]
  - Nausea [Recovered/Resolved]
  - Vomiting [Recovered/Resolved]
  - Off label use [Recovered/Resolved]
  - Intentional drug misuse [Recovered/Resolved]
